FAERS Safety Report 7545207-X (Version None)
Quarter: 2011Q2

REPORT INFORMATION
  Report Type: 
  Country: None (occurrence: None)
  Receive Date: 20110525
  Receipt Date: 20110304
  Transmission Date: 20111010
  Serious: No
  Sender: FDA-Public Use
  Company Number: 324516

PATIENT
  Sex: Female

DRUGS (1)
  1. VICTOZA [Suspect]
     Indication: TYPE 2 DIABETES MELLITUS
     Dosage: SUBCUTANEOUS
     Route: 058
     Dates: start: 20110223, end: 20110225

REACTIONS (4)
  - FLUSHING [None]
  - SKIN TIGHTNESS [None]
  - INJECTION SITE PRURITUS [None]
  - SOMNOLENCE [None]
